FAERS Safety Report 11656664 (Version 1)
Quarter: 2015Q4

REPORT INFORMATION
  Report Type: Spontaneous
  Country: US (occurrence: US)
  Receive Date: 20151023
  Receipt Date: 20151023
  Transmission Date: 20160304
  Serious: Yes (Other)
  Sender: FDA-Public Use
  Company Number: US-BAYER-2015-446548

PATIENT

DRUGS (1)
  1. CIPRO [Suspect]
     Active Substance: CIPROFLOXACIN HYDROCHLORIDE
     Dosage: 500 MG, UNK
     Dates: start: 2005

REACTIONS (8)
  - Vision blurred [None]
  - Photosensitivity reaction [None]
  - Hypersensitivity [None]
  - Heart rate increased [None]
  - Coma [None]
  - Pain [None]
  - Tinnitus [None]
  - Malaise [None]
